FAERS Safety Report 8187299-3 (Version None)
Quarter: 2012Q1

REPORT INFORMATION
  Report Type: 
  Country: None (occurrence: None)
  Receive Date: 20120306
  Receipt Date: 20120302
  Transmission Date: 20120608
  Serious: Yes (Life-Threatening, Other)
  Sender: FDA-Public Use
  Company Number: US-JNJFOC-20120205067

PATIENT
  Sex: Female
  Weight: 77.57 kg

DRUGS (7)
  1. DILTIAZEM HCL [Concomitant]
     Indication: CARDIAC DISORDER
  2. LEVOTHYROXINE SODIUM [Concomitant]
     Indication: HYPOTHYROIDISM
  3. OMEPRAZOLE [Concomitant]
     Indication: GASTROOESOPHAGEAL REFLUX DISEASE
  4. LEXAPRO [Concomitant]
     Indication: DEPRESSION
  5. XARELTO [Suspect]
     Indication: SURGERY
     Route: 048
     Dates: start: 20110201
  6. ATIVAN [Concomitant]
     Indication: ANXIETY
  7. XARELTO [Suspect]
     Indication: THROMBOSIS PROPHYLAXIS
     Route: 048
     Dates: start: 20110201

REACTIONS (1)
  - PULMONARY EMBOLISM [None]
